FAERS Safety Report 6823573-8 (Version None)
Quarter: 2010Q3

REPORT INFORMATION
  Report Type: 
  Country: None (occurrence: None)
  Receive Date: 20100708
  Receipt Date: 20060814
  Transmission Date: 20110219
  Serious: No
  Sender: FDA-Public Use
  Company Number: US-PFIZER INC-2006100129

PATIENT
  Sex: Female
  Weight: 73.48 kg

DRUGS (7)
  1. CHANTIX [Suspect]
     Indication: EX-TOBACCO USER
     Route: 048
     Dates: start: 20060711
  2. METFORMIN HCL [Concomitant]
     Route: 048
  3. LIPITOR [Concomitant]
     Route: 048
  4. CARTIA XT [Concomitant]
     Route: 048
  5. ACETYLSALICYLIC ACID [Concomitant]
     Route: 048
  6. ESTRADIOL [Concomitant]
     Route: 062
  7. NITRGLYCERIN TRANSDERMAL SYSTEM [Concomitant]
     Route: 062

REACTIONS (2)
  - HOT FLUSH [None]
  - HYPERHIDROSIS [None]
